FAERS Safety Report 5286391-0 (Version None)
Quarter: 2007Q2

REPORT INFORMATION
  Report Type: 
  Country: None (occurrence: None)
  Receive Date: 20070404
  Receipt Date: 20070330
  Transmission Date: 20071010
  Serious: Yes (Other)
  Sender: FDA-Public Use
  Company Number: 2006UW11210

PATIENT
  Age: 540 Month
  Sex: Female
  Weight: 90.9 kg

DRUGS (9)
  1. SEROQUEL [Suspect]
     Indication: SCHIZOAFFECTIVE DISORDER
     Route: 048
     Dates: start: 20050201, end: 20050301
  2. SEROQUEL [Suspect]
     Indication: DEPRESSION
     Route: 048
     Dates: start: 20050201, end: 20050301
  3. SEROQUEL [Suspect]
     Indication: ANXIETY
     Route: 048
     Dates: start: 20050201, end: 20050301
  4. ABILIFY [Concomitant]
     Dates: start: 20060101
  5. GEODON [Concomitant]
  6. RISPERDAL [Concomitant]
  7. STELAZINE [Concomitant]
  8. OLANZAPINE [Concomitant]
     Dates: start: 20050301, end: 20050501
  9. MARIJUANA [Concomitant]
     Dosage: ONCE EVERY SIX MONTHS

REACTIONS (2)
  - DIABETES MELLITUS [None]
  - PANCREATITIS [None]
